FAERS Safety Report 8329754 (Version 8)
Quarter: 2013Q4

REPORT INFORMATION
  Report Type: Report from Study
  Country: US (occurrence: US)
  Receive Date: 20120110
  Receipt Date: 20131017
  Transmission Date: 20140711
  Serious: Yes (Hospitalization)
  Sender: FDA-Public Use
  Company Number: US-PFIZER INC-2012001421

PATIENT
  Age: 75 Year
  Sex: Female
  Weight: 69 kg

DRUGS (13)
  1. OMNICEF [Suspect]
     Dosage: 300 MG, 2X/DAY
     Route: 048
     Dates: start: 20111216, end: 20111225
  2. PF 04840082 [Suspect]
     Indication: OSTEOPENIA
     Dosage: 916.32 MG, SINGLE
     Route: 042
     Dates: start: 20111010, end: 20111010
  3. ROCEPHIN [Suspect]
     Dosage: 1 MG, UNK
     Route: 042
     Dates: start: 20111216, end: 20111216
  4. FLAGYL [Concomitant]
     Dosage: 500 MG EVERY 12 HOURS
     Route: 048
     Dates: start: 20111216, end: 20111222
  5. ACETAMINOPHEN [Concomitant]
     Indication: PAIN
     Dosage: 600 MG, AS NEEDED
     Route: 048
     Dates: start: 20080101
  6. ATENOLOL [Concomitant]
     Indication: HYPERTENSION
     Dosage: 25 MG, 1X/DAY
     Route: 048
     Dates: start: 20090701
  7. VOLTAREN [Concomitant]
     Indication: PAIN
     Dosage: 1% AS NEEDED GEL
     Route: 061
     Dates: start: 20090101
  8. LISINOPRIL [Concomitant]
     Indication: HYPERTENSION
     Dosage: 20 MG, 1X/DAY
     Route: 048
     Dates: start: 20090101
  9. BENICAR [Concomitant]
     Indication: HYPERTENSION
     Dosage: 40 MG, 1X/DAY
     Route: 048
     Dates: start: 20111031
  10. VANCOMYCIN [Concomitant]
     Dosage: 250 MG, 4X/DAY
     Route: 048
  11. TEMAZEPAM [Concomitant]
     Indication: INSOMNIA
     Dosage: 30 MG, 3X/DAY
     Route: 048
     Dates: start: 2008
  12. PRO-AIR [Concomitant]
     Dosage: 1 PUFF, 2X/DAY, AS NEEDED
     Route: 055
  13. LEVAQUIN [Concomitant]
     Dosage: 300 MG EVERY 12 HOURS
     Route: 048

REACTIONS (1)
  - Clostridium difficile colitis [Recovering/Resolving]
